FAERS Safety Report 9759160 (Version 3)
Quarter: 2014Q4

REPORT INFORMATION
  Report Type: Spontaneous
  Country: US (occurrence: US)
  Receive Date: 20131216
  Receipt Date: 20141020
  Transmission Date: 20150529
  Serious: Yes (Congenital Anomaly, Other)
  Sender: FDA-Public Use
  Company Number: US-ELI_LILLY_AND_COMPANY-US201312003266

PATIENT

DRUGS (2)
  1. PROZAC [Suspect]
     Active Substance: FLUOXETINE HYDROCHLORIDE
     Indication: PRODUCT USED FOR UNKNOWN INDICATION
     Dosage: 1 DF, UNKNOWN
     Route: 064
  2. FERROUS SULFATE [Concomitant]
     Active Substance: FERROUS SULFATE\FERROUS SULFATE, DRIED
     Dosage: 1 DF, UNKNOWN
     Route: 064

REACTIONS (6)
  - Cleft palate [Recovered/Resolved with Sequelae]
  - Cleft lip [Recovered/Resolved with Sequelae]
  - Congenital scoliosis [Unknown]
  - Foetal exposure timing unspecified [Unknown]
  - Foetal alcohol syndrome [Unknown]
  - Fallot^s tetralogy [Recovered/Resolved with Sequelae]
